FAERS Safety Report 23395916 (Version 2)
Quarter: 2024Q2

REPORT INFORMATION
  Report Type: Spontaneous
  Country: US (occurrence: US)
  Receive Date: 20240112
  Receipt Date: 20240409
  Transmission Date: 20240716
  Serious: Yes (Hospitalization, Other)
  Sender: FDA-Public Use
  Company Number: US-MMM-P5ZT3MHO

PATIENT

DRUGS (6)
  1. ZEJULA [Suspect]
     Active Substance: NIRAPARIB
     Indication: Ovarian cancer
     Dosage: 200 MG, QD
     Route: 048
     Dates: start: 20210903
  2. ZEJULA [Suspect]
     Active Substance: NIRAPARIB
     Dosage: 200 MG, QD
  3. ZEJULA [Suspect]
     Active Substance: NIRAPARIB
     Dosage: 100 MG, QD
  4. ZEJULA [Suspect]
     Active Substance: NIRAPARIB
     Dosage: 200 MG, QD
  5. ZEJULA [Suspect]
     Active Substance: NIRAPARIB
     Indication: Ovarian cancer
     Dosage: 200 MG, QD
  6. ZEJULA [Suspect]
     Active Substance: NIRAPARIB
     Dosage: 200 MG, QD
     Route: 048

REACTIONS (9)
  - Neoplasm malignant [Unknown]
  - Platelet count decreased [Recovering/Resolving]
  - Haemoglobin decreased [Unknown]
  - Surgery [Unknown]
  - Blood magnesium decreased [Unknown]
  - Heart rate increased [Unknown]
  - Blood pressure decreased [Unknown]
  - Carbohydrate antigen 125 increased [Unknown]
  - Procedural dizziness [Unknown]

NARRATIVE: CASE EVENT DATE: 20210901
